FAERS Safety Report 12121580 (Version 1)
Quarter: 2016Q1

REPORT INFORMATION
  Report Type: Spontaneous
  Country: US (occurrence: US)
  Receive Date: 20160226
  Receipt Date: 20160226
  Transmission Date: 20160526
  Serious: No
  Sender: FDA-Public Use
  Company Number: US-ALLERGAN-1217651US

PATIENT
  Age: 56 Year
  Sex: Female

DRUGS (5)
  1. EVISTA                             /01303201/ [Concomitant]
     Indication: OSTEOPOROSIS
     Dosage: 60 MG, QD
     Route: 048
  2. REFRESH OPTIVE [Suspect]
     Active Substance: CARBOXYMETHYLCELLULOSE SODIUM\GLYCERIN
     Indication: DRY EYE
     Dosage: 2 GTT, PRN
     Route: 047
  3. PLAQUENIL                          /00072601/ [Concomitant]
     Indication: SJOGREN^S SYNDROME
     Dosage: UNK UNK, QD
     Route: 048
  4. HYOSCYAMINE. [Concomitant]
     Active Substance: HYOSCYAMINE
     Indication: IRRITABLE BOWEL SYNDROME
     Dosage: 0.375 MG, BID
     Route: 048
  5. RESTASIS [Concomitant]
     Active Substance: CYCLOSPORINE
     Indication: PRODUCT USED FOR UNKNOWN INDICATION
     Dosage: 2 GTT, QD
     Route: 047

REACTIONS (2)
  - Lacrimation increased [Not Recovered/Not Resolved]
  - Abnormal sensation in eye [Recovered/Resolved]
